FAERS Safety Report 4698722-0 (Version None)
Quarter: 2005Q2

REPORT INFORMATION
  Report Type: 
  Country: None (occurrence: None)
  Receive Date: 20050622
  Receipt Date: 20050609
  Transmission Date: 20051028
  Serious: Yes (Other)
  Sender: FDA-Public Use
  Company Number: 215214

PATIENT
  Age: 87 Year
  Sex: Female

DRUGS (1)
  1. AVASTIN [Suspect]
     Indication: COLORECTAL CANCER METASTATIC
     Dosage: 5 MG/KG, Q2W

REACTIONS (4)
  - ASTHENIA [None]
  - PLATELET COUNT DECREASED [None]
  - SKIN INFECTION [None]
  - WHITE BLOOD CELL COUNT DECREASED [None]
